FAERS Safety Report 8437219 (Version 3)
Quarter: 2012Q4

REPORT INFORMATION
  Report Type: Spontaneous
  Country: IT (occurrence: None)
  Receive Date: 20120221
  Receipt Date: 20121005
  Transmission Date: 20130627
  Serious: Yes (Death)
  Sender: FDA-Public Use
  Company Number: GER/ITL/12/0023050

PATIENT
  Age: 87 Year
  Sex: Male

DRUGS (7)
  1. CLOPIDOGREL [Suspect]
     Indication: THROMBOSIS IN DEVICE
     Dosage: 75 MG, ORAL
     Route: 048
     Dates: start: 20120130, end: 20120205
  2. METOPROLOL TARTRATE [Concomitant]
  3. ASPIRIN [Concomitant]
  4. LANSOPRAZOLE [Concomitant]
  5. TORVAST (ATORVASTATIN SODIUM) [Concomitant]
  6. SERENASE (MEPROBAMATE) [Concomitant]
  7. RAMIPRIL [Concomitant]

REACTIONS (8)
  - Electrocardiogram ST segment elevation [None]
  - Thrombosis in device [None]
  - Cardiac arrest [None]
  - Circulatory collapse [None]
  - Bradycardia [None]
  - Loss of consciousness [None]
  - Acute myocardial infarction [None]
  - Ventricular fibrillation [None]
